FAERS Safety Report 9642664 (Version 2)
Quarter: 2013Q4

REPORT INFORMATION
  Report Type: Spontaneous
  Country: US (occurrence: US)
  Receive Date: 20131024
  Receipt Date: 20131210
  Transmission Date: 20140711
  Serious: No
  Sender: FDA-Public Use
  Company Number: US-PFIZER INC-2013303271

PATIENT
  Age: 62 Year
  Sex: Female
  Weight: 72.6 kg

DRUGS (3)
  1. PREMARIN [Suspect]
     Indication: MENOPAUSAL SYMPTOMS
     Dosage: (0.5-1G), WEEKLY
     Route: 067
     Dates: start: 2002
  2. PREMARIN [Suspect]
     Indication: URINARY TRACT INFECTION
  3. PREMARIN [Suspect]
     Indication: CYSTITIS

REACTIONS (4)
  - Vaginal discharge [Recovered/Resolved]
  - Vulvovaginal pruritus [Not Recovered/Not Resolved]
  - Bladder irritation [Not Recovered/Not Resolved]
  - Abdominal pain [Not Recovered/Not Resolved]
